FAERS Safety Report 4380946-3 (Version None)
Quarter: 2004Q2

REPORT INFORMATION
  Report Type: 
  Country: None (occurrence: None)
  Receive Date: 20040618
  Receipt Date: 20040527
  Transmission Date: 20050107
  Serious: Yes (Hospitalization)
  Sender: FDA-Public Use
  Company Number: US-MERCK-0405USA02116

PATIENT
  Age: 18 Month
  Sex: Male

DRUGS (3)
  1. PULMICORT [Concomitant]
     Indication: ASTHMA
     Route: 065
  2. XOPENEX [Concomitant]
     Indication: ASTHMA
     Route: 065
  3. SINGULAIR [Suspect]
     Indication: ASTHMA
     Route: 048
     Dates: start: 20030101

REACTIONS (3)
  - ASTHMA [None]
  - ATELECTASIS [None]
  - PNEUMONIA [None]
